FAERS Safety Report 17149303 (Version 1)
Quarter: 2019Q4

REPORT INFORMATION
  Report Type: Spontaneous
  Country: FR (occurrence: FR)
  Receive Date: 20191213
  Receipt Date: 20191213
  Transmission Date: 20200122
  Serious: Yes (Hospitalization)
  Sender: FDA-Public Use
  Company Number: FR-TEVA-2019-FR-1149325

PATIENT
  Age: 52 Year
  Sex: Female
  Weight: 49 kg

DRUGS (2)
  1. AZITHROMYCINE ANHYDRE [Suspect]
     Active Substance: AZITHROMYCIN ANHYDROUS
     Indication: TRACHEITIS
     Route: 048
     Dates: start: 20191028
  2. OXOMEMAZINE [Suspect]
     Active Substance: OXOMEMAZINE
     Indication: TRACHEITIS
     Route: 048
     Dates: start: 20191028

REACTIONS (1)
  - Rash maculo-papular [Recovering/Resolving]

NARRATIVE: CASE EVENT DATE: 20191109
